FAERS Safety Report 18413769 (Version 2)
Quarter: 2021Q1

REPORT INFORMATION
  Report Type: Report from Study
  Country: None (occurrence: TR)
  Receive Date: 20201021
  Receipt Date: 20210112
  Transmission Date: 20210419
  Serious: Yes (Death, Hospitalization)
  Sender: FDA-Public Use
  Company Number: TR-ABBVIE-20K-161-3614674-00

PATIENT
  Age: 71 Year
  Sex: Male

DRUGS (5)
  1. PK MERZ [Concomitant]
     Active Substance: AMANTADINE SULFATE
     Indication: PARKINSON^S DISEASE
     Dosage: 2X2
     Route: 048
     Dates: start: 20150101
  2. DUODOPA [Suspect]
     Active Substance: CARBIDOPA\LEVODOPA
  3. CO? DIOVAN [Concomitant]
     Indication: HYPERTENSION
     Dosage: 160 MG VALSARTAN+12,5 MG HYDROCHLOROTHIAZIDE
     Route: 048
     Dates: start: 20060101
  4. DUODOPA [Suspect]
     Active Substance: CARBIDOPA\LEVODOPA
     Indication: PARKINSON^S DISEASE
     Dosage: MORNING DOSE (ML): 5.80 CONTINUOUS DOSE (ML): 4.20 EXTRA DOSE (ML): 1.00
     Route: 050
     Dates: start: 20160823
  5. MADOPAR HBS [Concomitant]
     Active Substance: BENSERAZIDE HYDROCHLORIDE\LEVODOPA
     Indication: PARKINSON^S DISEASE
     Route: 048
     Dates: start: 20060101

REACTIONS (5)
  - General physical condition abnormal [Unknown]
  - COVID-19 [Unknown]
  - Decreased appetite [Unknown]
  - Unevaluable event [Fatal]
  - Cardiac arrest [Fatal]

NARRATIVE: CASE EVENT DATE: 20210107
